FAERS Safety Report 4660705-4 (Version None)
Quarter: 2005Q2

REPORT INFORMATION
  Report Type: 
  Country: None (occurrence: None)
  Receive Date: 20050512
  Receipt Date: 20041006
  Transmission Date: 20051028
  Serious: Yes (Disabling)
  Sender: FDA-Public Use
  Company Number: US-MERCK-0410USA00912

PATIENT
  Age: 50 Year
  Sex: Female
  Weight: 69 kg

DRUGS (5)
  1. VIOXX [Suspect]
     Indication: BURSITIS
     Route: 048
     Dates: start: 20040101, end: 20041001
  2. NADOLOL [Concomitant]
     Indication: HEADACHE
     Route: 048
     Dates: start: 20030101
  3. NEXIUM [Concomitant]
     Indication: GASTROOESOPHAGEAL REFLUX DISEASE
     Route: 048
     Dates: start: 20030101
  4. ASPIRIN [Concomitant]
     Route: 048
     Dates: start: 20030101
  5. ESTRACE [Concomitant]
     Indication: ATROPHY
     Route: 067
     Dates: start: 20030101

REACTIONS (10)
  - ANXIETY [None]
  - DISTURBANCE IN ATTENTION [None]
  - DIZZINESS [None]
  - DYSARTHRIA [None]
  - HEADACHE [None]
  - HYPOAESTHESIA [None]
  - PALPITATIONS [None]
  - PARAESTHESIA [None]
  - SENSORY LOSS [None]
  - VISUAL FIELD DEFECT [None]
